FAERS Safety Report 16462410 (Version 1)
Quarter: 2019Q2

REPORT INFORMATION
  Report Type: Spontaneous
  Country: CA (occurrence: CA)
  Receive Date: 20190621
  Receipt Date: 20190621
  Transmission Date: 20190711
  Serious: Yes (Other)
  Sender: FDA-Public Use
  Company Number: CA-PFIZER INC-2018501692

PATIENT
  Age: 41 Year
  Sex: Female

DRUGS (2)
  1. CELEBREX [Suspect]
     Active Substance: CELECOXIB
     Indication: ARTHRITIS
     Dosage: UNK
  2. ARAVA [Concomitant]
     Active Substance: LEFLUNOMIDE
     Dosage: 20 MG, UNK

REACTIONS (3)
  - Bone disorder [Unknown]
  - Neoplasm [Unknown]
  - Drug ineffective [Unknown]
